FAERS Safety Report 4864753-0 (Version None)
Quarter: 2005Q4

REPORT INFORMATION
  Report Type: 
  Country: None (occurrence: None)
  Receive Date: 20051222
  Receipt Date: 20051215
  Transmission Date: 20060501
  Serious: Yes (Life-Threatening, Hospitalization)
  Sender: FDA-Public Use
  Company Number: AU-MERCK-0512AUS00303

PATIENT
  Age: 67 Year
  Sex: Male
  Weight: 107 kg

DRUGS (6)
  1. ZETIA [Suspect]
     Indication: METABOLIC DISORDER
     Route: 048
     Dates: start: 20050427
  2. WARFARIN SODIUM [Concomitant]
     Indication: CONDUCTION DISORDER
     Route: 065
  3. CANDESARTAN CILEXETIL AND HYDROCHLOROTHIAZIDE [Concomitant]
     Indication: ESSENTIAL HYPERTENSION
     Route: 065
  4. RANITIDINE HYDROCHLORIDE [Concomitant]
     Indication: OESOPHAGEAL DISORDER
     Route: 065
  5. METFORMIN HYDROCHLORIDE [Concomitant]
     Indication: DIABETES MELLITUS
     Route: 065
  6. SOTALOL HYDROCHLORIDE [Concomitant]
     Indication: CONDUCTION DISORDER
     Route: 065

REACTIONS (1)
  - INTERNATIONAL NORMALISED RATIO DECREASED [None]
